FAERS Safety Report 10166491 (Version 1)
Quarter: 2014Q2

REPORT INFORMATION
  Report Type: Spontaneous
  Country: US (occurrence: US)
  Receive Date: 20140512
  Receipt Date: 20140512
  Transmission Date: 20141212
  Serious: No
  Sender: FDA-Public Use
  Company Number: US-MYLANLABS-2014S1007054

PATIENT
  Age: 74 Year
  Sex: Male

DRUGS (2)
  1. MORPHINE SULFATE EXTENDED-RELEASE TABLETS [Suspect]
     Indication: PAIN
     Route: 048
     Dates: start: 201402
  2. CHEMOTHERAPEUTICS [Concomitant]
     Indication: NEOPLASM MALIGNANT
     Dosage: PT IS UNDERGOING UNKNOWN CHEMOTHERAPY.

REACTIONS (2)
  - Dysgeusia [Not Recovered/Not Resolved]
  - Nervousness [Not Recovered/Not Resolved]
